FAERS Safety Report 5121017-8 (Version None)
Quarter: 2006Q4

REPORT INFORMATION
  Report Type: 
  Country: None (occurrence: None)
  Receive Date: 20061002
  Receipt Date: 20060911
  Transmission Date: 20070319
  Serious: Yes (Other)
  Sender: FDA-Public Use
  Company Number: WAES 0609CRI00001

PATIENT
  Age: 31 Day
  Sex: Female

DRUGS (8)
  1. CANCIDAS [Suspect]
     Indication: CANDIDIASIS
     Dosage: 2.2 MG/DAILY INJ
     Dates: start: 20060906
  2. AMPHOTERICIN B [Concomitant]
  3. BUMETANIDE [Concomitant]
  4. CIPROFLOXACIN [Concomitant]
  5. DOPAMINE HCL [Concomitant]
  6. FLUCONAZOLE [Concomitant]
  7. FUROSEMIDE [Concomitant]
  8. MEROPENEM [Concomitant]

REACTIONS (1)
  - HYPOTENSION [None]
